FAERS Safety Report 4989603-3 (Version None)
Quarter: 2006Q2

REPORT INFORMATION
  Report Type: 
  Country: None (occurrence: None)
  Receive Date: 20060426
  Receipt Date: 20060410
  Transmission Date: 20061013
  Serious: Yes (Other)
  Sender: FDA-Public Use
  Company Number: 200612293BWH

PATIENT

DRUGS (1)
  1. NEXAVAR [Suspect]

REACTIONS (1)
  - GASTROINTESTINAL PERFORATION [None]
